FAERS Safety Report 11999812 (Version 1)
Quarter: 2016Q1

REPORT INFORMATION
  Report Type: Spontaneous
  Country: US (occurrence: None)
  Receive Date: 20160203
  Receipt Date: 20160203
  Transmission Date: 20160526
  Serious: Yes (Other)
  Sender: FDA-Public Use
  Company Number: None

PATIENT
  Age: 45 Year
  Sex: Female

DRUGS (1)
  1. IBRANCE [Suspect]
     Active Substance: PALBOCICLIB
     Indication: NEOPLASM MALIGNANT
     Dosage: FOR 21 DAYS
     Route: 048
     Dates: start: 20150623

REACTIONS (3)
  - Irritability [None]
  - Sleep disorder [None]
  - Anxiety [None]

NARRATIVE: CASE EVENT DATE: 20151201
